FAERS Safety Report 17622752 (Version 3)
Quarter: 2020Q2

REPORT INFORMATION
  Report Type: Report from Study
  Country: US (occurrence: US)
  Receive Date: 20200403
  Receipt Date: 20200520
  Transmission Date: 20200713
  Serious: Yes (Hospitalization, Other)
  Sender: FDA-Public Use
  Company Number: US-BIOVITRUM-2020US0918

PATIENT
  Sex: Female

DRUGS (1)
  1. KINERET [Suspect]
     Active Substance: ANAKINRA
     Indication: RHEUMATOID ARTHRITIS
     Dates: start: 20190416

REACTIONS (17)
  - Intestinal obstruction [Unknown]
  - Onychomycosis [Unknown]
  - Pain [Unknown]
  - Musculoskeletal pain [Unknown]
  - Palpitations [Unknown]
  - Condition aggravated [Unknown]
  - Pneumonia [Unknown]
  - Musculoskeletal disorder [Unknown]
  - Peripheral swelling [Unknown]
  - Bursitis [Unknown]
  - Rheumatoid arthritis [Unknown]
  - Fatigue [Unknown]
  - Tenderness [Unknown]
  - Pyrexia [Unknown]
  - Influenza [Unknown]
  - Dyskinesia [Unknown]
  - Arthralgia [Unknown]
